FAERS Safety Report 9285804 (Version 1)
Quarter: 2013Q2

REPORT INFORMATION
  Report Type: Spontaneous
  Country: US (occurrence: US)
  Receive Date: 20130513
  Receipt Date: 20130513
  Transmission Date: 20140414
  Serious: Yes (Life-Threatening, Hospitalization, Disabling, Other)
  Sender: FDA-Public Use
  Company Number: US-SANOFI-AVENTIS-2013SA046528

PATIENT
  Age: 60 Year
  Sex: Female

DRUGS (4)
  1. AUBAGIO [Suspect]
     Indication: MULTIPLE SCLEROSIS
     Route: 048
     Dates: start: 201302, end: 201303
  2. HEPARIN [Suspect]
  3. LEVAQUIN [Concomitant]
  4. ARIXTRA [Concomitant]

REACTIONS (13)
  - Pulmonary embolism [Not Recovered/Not Resolved]
  - Guillain-Barre syndrome [Not Recovered/Not Resolved]
  - Paralysis [Not Recovered/Not Resolved]
  - Nerve stimulation test abnormal [Not Recovered/Not Resolved]
  - Areflexia [Not Recovered/Not Resolved]
  - Muscular weakness [Not Recovered/Not Resolved]
  - Intervertebral disc displacement [Unknown]
  - Abasia [Unknown]
  - Arthralgia [Unknown]
  - Joint swelling [Unknown]
  - Joint swelling [Unknown]
  - Joint swelling [Unknown]
  - Platelet count decreased [Unknown]
